FAERS Safety Report 9441781 (Version 1)
Quarter: 2013Q3

REPORT INFORMATION
  Report Type: Spontaneous
  Country: US (occurrence: US)
  Receive Date: 20130806
  Receipt Date: 20130806
  Transmission Date: 20140515
  Serious: No
  Sender: FDA-Public Use
  Company Number: US-PFIZER INC-2013220138

PATIENT
  Age: 56 Year
  Sex: Female

DRUGS (1)
  1. INLYTA [Suspect]
     Indication: MALIGNANT URINARY TRACT NEOPLASM
     Dosage: 5 MG, EVERY 12 HOURS
     Dates: start: 20130725

REACTIONS (2)
  - Dysphonia [Unknown]
  - Off label use [Unknown]
